FAERS Safety Report 15884014 (Version 1)
Quarter: 2019Q1

REPORT INFORMATION
  Report Type: Spontaneous
  Country: DE (occurrence: DE)
  Receive Date: 20190129
  Receipt Date: 20190129
  Transmission Date: 20190417
  Serious: Yes (Other)
  Sender: FDA-Public Use
  Company Number: PHHY2019DE015482

PATIENT
  Sex: Male
  Weight: 1.6 kg

DRUGS (11)
  1. METOPROLOL. [Suspect]
     Active Substance: METOPROLOL
     Indication: FOETAL EXPOSURE DURING PREGNANCY
     Route: 064
  2. METHYLDOPA. [Concomitant]
     Active Substance: METHYLDOPA
     Dosage: 750 MG, TID
     Route: 064
  3. SODIUM HYDROGEN CARBONATE [Concomitant]
     Active Substance: SODIUM BICARBONATE
     Indication: FOETAL EXPOSURE DURING PREGNANCY
     Dosage: 3 G, QW
     Route: 064
  4. TORASEMIDE [Concomitant]
     Active Substance: TORSEMIDE
     Dosage: 6X PER WEEK
     Route: 064
  5. CEFUROXIME. [Concomitant]
     Active Substance: CEFUROXIME
     Indication: FOETAL EXPOSURE DURING PREGNANCY
     Dosage: 6X PER WEEK
     Route: 064
  6. TORASEMIDE [Concomitant]
     Active Substance: TORSEMIDE
     Indication: FOETAL EXPOSURE DURING PREGNANCY
     Dosage: 50 MG, TIW
     Route: 064
  7. CEFUROXIME. [Concomitant]
     Active Substance: CEFUROXIME
     Dosage: 750 MG, QW
     Route: 064
  8. ALLOPURINOL. [Concomitant]
     Active Substance: ALLOPURINOL
     Dosage: 6X PER WEEK
     Route: 064
  9. METHYLDOPA. [Concomitant]
     Active Substance: METHYLDOPA
     Indication: FOETAL EXPOSURE DURING PREGNANCY
     Dosage: 2 G, QD
     Route: 064
  10. ALLOPURINOL. [Concomitant]
     Active Substance: ALLOPURINOL
     Indication: FOETAL EXPOSURE DURING PREGNANCY
     Dosage: 900 MG, UNK
     Route: 064
  11. NIFEDIPINE. [Concomitant]
     Active Substance: NIFEDIPINE
     Indication: FOETAL EXPOSURE DURING PREGNANCY
     Dosage: 10 MG, UNK
     Route: 064

REACTIONS (3)
  - Foetal exposure during pregnancy [Recovered/Resolved]
  - Foetal growth restriction [Unknown]
  - Small for dates baby [Unknown]
